FAERS Safety Report 9363964 (Version 1)
Quarter: 2013Q2

REPORT INFORMATION
  Report Type: Spontaneous
  Country: FR (occurrence: FR)
  Receive Date: 20130624
  Receipt Date: 20130624
  Transmission Date: 20140414
  Serious: Yes (Death)
  Sender: FDA-Public Use
  Company Number: FR-BAXTER-2013BAX022604

PATIENT
  Age: 84 Year
  Sex: Male

DRUGS (4)
  1. CLINIMIX N9G15E, SOLUTION POUR PERFUSION EN POCHE BICOMPARTIMENT [Suspect]
     Indication: PARENTERAL NUTRITION
     Route: 058
     Dates: start: 20130614, end: 20130615
  2. CLINIMIX N9G15E, SOLUTION POUR PERFUSION EN POCHE BICOMPARTIMENT [Suspect]
     Indication: OFF LABEL USE
  3. GLUCOSE 5 % VIAFLO, SOLUTION POUR PERFUSION [Suspect]
     Indication: PARENTERAL NUTRITION
     Route: 058
     Dates: start: 20130615, end: 20130616
  4. GLUCOSE 5 % VIAFLO, SOLUTION POUR PERFUSION [Suspect]
     Indication: OFF LABEL USE

REACTIONS (8)
  - Death [Fatal]
  - Incorrect route of drug administration [Recovered/Resolved]
  - Injection site oedema [Unknown]
  - Injection site induration [Unknown]
  - White blood cell count decreased [Unknown]
  - Platelet count decreased [Unknown]
  - Red blood cell count decreased [Unknown]
  - Off label use [None]
